APPROVED DRUG PRODUCT: LOSARTAN POTASSIUM AND HYDROCHLOROTHIAZIDE
Active Ingredient: HYDROCHLOROTHIAZIDE; LOSARTAN POTASSIUM
Strength: 25MG;100MG
Dosage Form/Route: TABLET;ORAL
Application: A201682 | Product #003
Applicant: IPCA LABORATORIES LTD
Approved: Mar 1, 2013 | RLD: No | RS: No | Type: DISCN